FAERS Safety Report 5892767-0 (Version None)
Quarter: 2008Q3

REPORT INFORMATION
  Report Type: 
  Country: None (occurrence: None)
  Receive Date: 20080919
  Receipt Date: 20080919
  Transmission Date: 20090109
  Serious: No
  Sender: FDA-Public Use
  Company Number: None

PATIENT
  Sex: Female
  Weight: 68.1 kg

DRUGS (3)
  1. FLUOROURACIL [Suspect]
     Dosage: 845 MG
     Dates: end: 20080815
  2. CYCLOPHOSPHAMIDE [Suspect]
     Dosage: 845 MG
     Dates: end: 20080815
  3. ELLENCE [Suspect]
     Dosage: 127 MG
     Dates: end: 20080815

REACTIONS (1)
  - NEUTROPHIL COUNT DECREASED [None]
